FAERS Safety Report 24755556 (Version 2)
Quarter: 2025Q1

REPORT INFORMATION
  Report Type: Spontaneous
  Country: US (occurrence: US)
  Receive Date: 20241219
  Receipt Date: 20250301
  Transmission Date: 20250408
  Serious: No
  Sender: SANOFI AVENTIS
  Company Number: US-SA-2024SA374005

PATIENT
  Age: 67 Year
  Sex: Male
  Weight: 81.82 kg

DRUGS (26)
  1. SARCLISA [Suspect]
     Active Substance: ISATUXIMAB-IRFC
     Indication: Plasma cell myeloma
     Dosage: 840 MG, QOW
     Route: 040
     Dates: start: 20240521, end: 20250218
  2. ACYCLOVIR [Concomitant]
     Active Substance: ACYCLOVIR
  3. ACYCLOVIR [Concomitant]
     Active Substance: ACYCLOVIR
  4. ASPIRIN [Concomitant]
     Active Substance: ASPIRIN
  5. ASPIRIN [Concomitant]
     Active Substance: ASPIRIN
  6. CALCITONIN SALMON [Concomitant]
     Active Substance: CALCITONIN SALMON
  7. CALCIUM CARBONATE [Concomitant]
     Active Substance: CALCIUM CARBONATE
  8. COLCHICINE [Concomitant]
     Active Substance: COLCHICINE
  9. COLCHICINE [Concomitant]
     Active Substance: COLCHICINE
  10. DIPHENHYDRAMINE [Concomitant]
     Active Substance: DIPHENHYDRAMINE
  11. DOCUSATE [Concomitant]
     Active Substance: DOCUSATE
  12. FAMOTIDINE [Concomitant]
     Active Substance: FAMOTIDINE
  13. FLUTICASONE [Concomitant]
     Active Substance: FLUTICASONE
  14. IRBESARTAN [Concomitant]
     Active Substance: IRBESARTAN
  15. LENALIDOMIDE [Concomitant]
     Active Substance: LENALIDOMIDE
  16. LORATADINE [Concomitant]
     Active Substance: LORATADINE
  17. BACTRIM [Concomitant]
     Active Substance: SULFAMETHOXAZOLE\TRIMETHOPRIM
  18. MAGNESIUM [Concomitant]
     Active Substance: MAGNESIUM
  19. METFORMIN [Concomitant]
     Active Substance: METFORMIN HYDROCHLORIDE
  20. METHOCARBAMOL [Concomitant]
     Active Substance: METHOCARBAMOL
  21. MORPHINE SULFATE [Concomitant]
     Active Substance: MORPHINE SULFATE
  22. VITAMINS NOS [Concomitant]
     Active Substance: VITAMINS
  23. NALOXONE [Concomitant]
     Active Substance: NALOXONE
  24. ONDANSETRON [Concomitant]
     Active Substance: ONDANSETRON
  25. OXYCODONE [Concomitant]
     Active Substance: OXYCODONE
  26. ZOLEDRONIC ACID [Concomitant]
     Active Substance: ZOLEDRONIC ACID

REACTIONS (1)
  - Weight decreased [Unknown]

NARRATIVE: CASE EVENT DATE: 20241114
